FAERS Safety Report 8073495-2 (Version None)
Quarter: 2012Q1

REPORT INFORMATION
  Report Type: 
  Country: None (occurrence: None)
  Receive Date: 20120126
  Receipt Date: 20120126
  Transmission Date: 20120608
  Serious: Yes (Life-Threatening, Other)
  Sender: FDA-Public Use
  Company Number: None

PATIENT
  Age: 50 Year
  Sex: Female
  Weight: 49.895 kg

DRUGS (2)
  1. GABAPENTIN [Suspect]
     Indication: BACK PAIN
     Dosage: 2 CAPSULES
     Route: 048
  2. GABAPENTIN [Suspect]
     Indication: NECK PAIN
     Dosage: 2 CAPSULES
     Route: 048

REACTIONS (7)
  - MUSCULAR WEAKNESS [None]
  - TINNITUS [None]
  - SPEECH DISORDER [None]
  - TREMOR [None]
  - FALL [None]
  - ASTHENIA [None]
  - PARAESTHESIA [None]
